FAERS Safety Report 19356284 (Version 1)
Quarter: 2021Q2

REPORT INFORMATION
  Report Type: Spontaneous
  Country: US (occurrence: US)
  Receive Date: 20210602
  Receipt Date: 20210602
  Transmission Date: 20210717
  Serious: Yes (Hospitalization)
  Sender: FDA-Public Use
  Company Number: None

PATIENT
  Age: 57 Year
  Sex: Male
  Weight: 44.7 kg

DRUGS (5)
  1. SPRYCEL [Suspect]
     Active Substance: DASATINIB
     Dates: end: 20210523
  2. METHOTREXATE. [Suspect]
     Active Substance: METHOTREXATE
     Dates: end: 20210514
  3. CYTARABINE. [Suspect]
     Active Substance: CYTARABINE
     Dates: end: 20210516
  4. DEXAMETHASONE. [Suspect]
     Active Substance: DEXAMETHASONE
     Dates: end: 20210516
  5. VINCRISTINE SULFATE. [Suspect]
     Active Substance: VINCRISTINE SULFATE
     Dates: end: 20210426

REACTIONS (3)
  - White blood cell count decreased [None]
  - Neutrophil count decreased [None]
  - Pyrexia [None]

NARRATIVE: CASE EVENT DATE: 20210524
